FAERS Safety Report 4579613-2 (Version None)
Quarter: 2005Q1

REPORT INFORMATION
  Report Type: 
  Country: None (occurrence: None)
  Receive Date: 20050210
  Receipt Date: 20050210
  Transmission Date: 20050727
  Serious: Yes (Other)
  Sender: FDA-Public Use
  Company Number: None

PATIENT
  Age: 56 Year
  Sex: Male
  Weight: 124.2856 kg

DRUGS (2)
  1. MS CONTIN [Suspect]
     Indication: DIABETES MELLITUS
     Dosage: 100MG 1 PO BID  ; 30MG 1 PO BID
     Route: 048
  2. MS CONTIN [Suspect]
     Indication: PAIN
     Dosage: 100MG 1 PO BID  ; 30MG 1 PO BID
     Route: 048

REACTIONS (2)
  - PHARMACEUTICAL PRODUCT COMPLAINT [None]
  - VOMITING [None]
